FAERS Safety Report 9126618 (Version 2)
Quarter: 2013Q1

REPORT INFORMATION
  Report Type: Spontaneous
  Country: US (occurrence: US)
  Receive Date: 20130228
  Receipt Date: 20130321
  Transmission Date: 20140127
  Serious: Yes (Other)
  Sender: FDA-Public Use
  Company Number: US-JNJFOC-20130214574

PATIENT
  Age: 74 Year
  Sex: Male
  Weight: 92.99 kg

DRUGS (10)
  1. POLYSPORIN REGULAR [Suspect]
     Indication: LACERATION
     Dosage: PEA SIZE
     Route: 061
     Dates: start: 20130209, end: 20130209
  2. ECOTRIN [Concomitant]
     Route: 065
  3. PRILOSEC [Concomitant]
     Route: 065
  4. GABAPENTIN [Concomitant]
     Route: 065
  5. IBUPROFEN [Concomitant]
     Indication: PAIN
     Route: 065
  6. ATENOLOL [Concomitant]
     Indication: CARDIAC DISORDER
     Route: 065
  7. EXCEDRIN (ACETAMINOPHEN/ASPIRIN/CAFFEINE) [Concomitant]
     Indication: MYOCARDIAL INFARCTION
     Route: 065
     Dates: start: 1998
  8. MULTIVITAMINS [Concomitant]
     Indication: NUTRITIONAL SUPPLEMENTATION
     Route: 065
     Dates: start: 2010
  9. PLAVIX [Concomitant]
     Indication: ANTICOAGULANT THERAPY
     Route: 065
  10. SIMVASTATIN [Concomitant]
     Indication: BLOOD CHOLESTEROL
     Route: 065
     Dates: start: 2001

REACTIONS (5)
  - Thermal burn [Recovering/Resolving]
  - Infection [Recovering/Resolving]
  - Application site burn [None]
  - Application site infection [None]
  - Wrong technique in drug usage process [None]
